FAERS Safety Report 9198802 (Version 1)
Quarter: 2013Q1

REPORT INFORMATION
  Report Type: Spontaneous
  Country: US (occurrence: None)
  Receive Date: 20130327
  Receipt Date: 20130327
  Transmission Date: 20140127
  Serious: No
  Sender: FDA-Public Use
  Company Number: None

PATIENT
  Age: 7 Year
  Sex: Male

DRUGS (2)
  1. MONTELUKAST [Suspect]
     Indication: ASTHMA
     Dosage: 5MG  1 TIME DAILY  ORAL
     Route: 048
     Dates: start: 20120904, end: 20120909
  2. MONTELUKAST [Suspect]
     Indication: RHINITIS ALLERGIC
     Dosage: 5MG  1 TIME DAILY  ORAL
     Route: 048
     Dates: start: 20120904, end: 20120909

REACTIONS (4)
  - Eye swelling [None]
  - Rhinorrhoea [None]
  - Nasal congestion [None]
  - Ocular hyperaemia [None]
